FAERS Safety Report 7260679-6 (Version None)
Quarter: 2011Q1

REPORT INFORMATION
  Report Type: 
  Country: None (occurrence: None)
  Receive Date: 20110130
  Receipt Date: 20101220
  Transmission Date: 20110831
  Serious: No
  Sender: FDA-Public Use
  Company Number: US-ABBOTT-10P-163-0693001-00

PATIENT
  Sex: Male
  Weight: 122.58 kg

DRUGS (5)
  1. ADALIMUMAB [Suspect]
     Indication: PSORIASIS
     Dates: start: 20100301, end: 20100801
  2. CLONAZEPAM [Concomitant]
     Indication: ANXIETY
  3. PERCOCET [Suspect]
     Indication: PRODUCT USED FOR UNKNOWN INDICATION
  4. PROZAC [Concomitant]
     Indication: DEPRESSION
  5. HUMIRA [Suspect]
     Indication: PSORIASIS
     Dates: start: 20080101, end: 20100101

REACTIONS (6)
  - FALL [None]
  - BACK INJURY [None]
  - INJECTION SITE PAIN [None]
  - VOMITING [None]
  - PSORIASIS [None]
  - BACK PAIN [None]
